FAERS Safety Report 10903373 (Version 1)
Quarter: 2015Q1

REPORT INFORMATION
  Report Type: Spontaneous
  Country: AT (occurrence: AT)
  Receive Date: 20150311
  Receipt Date: 20150311
  Transmission Date: 20150721
  Serious: Yes (Other)
  Sender: FDA-Public Use
  Company Number: AT-ASTRAZENECA-2015SE05865

PATIENT
  Age: 797 Month
  Sex: Male
  Weight: 82 kg

DRUGS (1)
  1. FORXIGA [Suspect]
     Active Substance: DAPAGLIFLOZIN
     Indication: PRODUCT USED FOR UNKNOWN INDICATION
     Route: 048
     Dates: start: 20140704, end: 201409

REACTIONS (1)
  - Nocturia [Recovered/Resolved]

NARRATIVE: CASE EVENT DATE: 201408
